FAERS Safety Report 4636851-8 (Version None)
Quarter: 2005Q2

REPORT INFORMATION
  Report Type: 
  Country: None (occurrence: None)
  Receive Date: 20050414
  Receipt Date: 20050408
  Transmission Date: 20051028
  Serious: Yes (Hospitalization, Other)
  Sender: FDA-Public Use
  Company Number: HQWYE277729DEC04

PATIENT
  Age: 71 Year
  Sex: Male
  Weight: 87 kg

DRUGS (3)
  1. MYLOTARG [Suspect]
     Indication: ACUTE MYELOID LEUKAEMIA
     Dosage: 17 MG 1X PER 1 DAY; INTRAVENOUS (SEE IMAGE)
     Route: 042
     Dates: start: 20041216, end: 20041216
  2. MYLOTARG [Suspect]
     Indication: ACUTE MYELOID LEUKAEMIA
     Dosage: 17 MG 1X PER 1 DAY; INTRAVENOUS (SEE IMAGE)
     Route: 042
     Dates: start: 20041230, end: 20041230
  3. CIPRO [Concomitant]

REACTIONS (4)
  - CHILLS [None]
  - PANCYTOPENIA [None]
  - PROCTALGIA [None]
  - PYREXIA [None]
